FAERS Safety Report 4801603-2 (Version None)
Quarter: 2005Q4

REPORT INFORMATION
  Report Type: 
  Country: None (occurrence: None)
  Receive Date: 20051018
  Receipt Date: 20050829
  Transmission Date: 20060501
  Serious: Yes (Hospitalization)
  Sender: FDA-Public Use
  Company Number: 2005CG01433

PATIENT
  Age: 78 Year
  Sex: Male
  Weight: 80 kg

DRUGS (13)
  1. MOPRAL [Suspect]
     Route: 048
  2. CLONAZEPAM [Suspect]
     Indication: HEADACHE
     Route: 048
     Dates: start: 20050706, end: 20050709
  3. ALLOPURINOL [Suspect]
     Indication: GOUT
     Route: 048
  4. KARDEGIC [Suspect]
     Route: 048
  5. ZOCOR [Suspect]
     Route: 048
  6. PLAVIX [Suspect]
     Route: 048
  7. PRAXILENE [Suspect]
  8. MIXTARD HUMAN 70/30 [Suspect]
     Indication: DIABETES MELLITUS
  9. AMLOR [Suspect]
  10. CORVASAL [Suspect]
     Route: 048
  11. ODRIK [Suspect]
     Route: 048
  12. LASIX [Suspect]
  13. DETENSIEL [Suspect]

REACTIONS (3)
  - CHILLS [None]
  - HOT FLUSH [None]
  - HYPERHIDROSIS [None]
